FAERS Safety Report 7423117-6 (Version None)
Quarter: 2011Q2

REPORT INFORMATION
  Report Type: 
  Country: None (occurrence: None)
  Receive Date: 20110411
  Receipt Date: 20110328
  Transmission Date: 20111010
  Serious: Yes (Death, Hospitalization, Other)
  Sender: FDA-Public Use
  Company Number: 20110241

PATIENT
  Sex: Female
  Weight: 45 kg

DRUGS (6)
  1. CONCENTRATED B COMPLEX (VITAMIN B COMPLEX) [Concomitant]
  2. VENOFER [Suspect]
     Indication: IRON DEFICIENCY
     Dosage: 1 AMPULE INTRAVENOUS
     Route: 042
     Dates: start: 20110304, end: 20110304
  3. VENOFER (IRON SUCROSE INJECTION-VIFOR (IRON SUCROSE INJECTION) 20 MG/M [Suspect]
     Indication: IRON DEFICIENCY
     Dosage: INTRAVENOUS DRIP
     Route: 041
     Dates: start: 20110314, end: 20110314
  4. WHEAT GERM OIL (OCTACOSANOL) [Concomitant]
  5. ROYAL JELLY (APIS MELLIFERA L) [Concomitant]
  6. BREWER'S YEAST (SACCHAROMYCES CEREVISIAE) [Concomitant]

REACTIONS (11)
  - OEDEMA PERIPHERAL [None]
  - NEOPLASM PROGRESSION [None]
  - MEDICATION ERROR [None]
  - GASTRIC CANCER [None]
  - HEADACHE [None]
  - INCORRECT DRUG ADMINISTRATION RATE [None]
  - CEREBROVASCULAR ACCIDENT [None]
  - HAEMATOMA [None]
  - FALL [None]
  - CEREBRAL HAEMORRHAGE [None]
  - INTRACRANIAL PRESSURE INCREASED [None]
